FAERS Safety Report 10059405 (Version 2)
Quarter: 2014Q2

REPORT INFORMATION
  Report Type: Spontaneous
  Country: US (occurrence: US)
  Receive Date: 20140404
  Receipt Date: 20140418
  Transmission Date: 20141212
  Serious: No
  Sender: FDA-Public Use
  Company Number: US-009507513-1404USA001943

PATIENT
  Age: 42 Year
  Sex: Male

DRUGS (1)
  1. AMITRIPTYLINE HYDROCHLORIDE [Suspect]
     Dosage: SUBSTANCE ABUSE
     Route: 048

REACTIONS (2)
  - Intentional overdose [Unknown]
  - Intentional product misuse [Unknown]
